FAERS Safety Report 6103018-6 (Version None)
Quarter: 2009Q1

REPORT INFORMATION
  Report Type: 
  Country: None (occurrence: None)
  Receive Date: 20090305
  Receipt Date: 20090302
  Transmission Date: 20090719
  Serious: Yes (Death)
  Sender: FDA-Public Use
  Company Number: PHHY2009JP03296

PATIENT
  Age: 80 Year
  Sex: Female

DRUGS (3)
  1. NEORAL [Suspect]
     Indication: INTERSTITIAL LUNG DISEASE
     Dosage: 100 MG/DAY
     Route: 048
     Dates: start: 20081218, end: 20090126
  2. PREDNISOLONE [Concomitant]
     Indication: INTERSTITIAL LUNG DISEASE
     Dosage: 60 MG/DAY
     Dates: start: 20081218, end: 20090126
  3. FAMOTIDINE [Concomitant]
     Dosage: 40 MG
     Dates: start: 20081218, end: 20090126

REACTIONS (3)
  - ANOREXIA [None]
  - INTERSTITIAL LUNG DISEASE [None]
  - ORAL CANDIDIASIS [None]
